FAERS Safety Report 4950989-7 (Version None)
Quarter: 2006Q1

REPORT INFORMATION
  Report Type: 
  Country: None (occurrence: None)
  Receive Date: 20060315
  Receipt Date: 20060225
  Transmission Date: 20060701
  Serious: Yes (Other)
  Sender: FDA-Public Use
  Company Number: CA200603001364

PATIENT
  Age: 79 Year
  Sex: Female

DRUGS (4)
  1. FORTEO [Suspect]
     Indication: OSTEOPOROSIS
     Dates: start: 20060125, end: 20060201
  2. FORTEN PEN [Concomitant]
  3. CALCIUM GLUCONATE [Concomitant]
  4. MULTIVITAMINS (ASCORBIC ACID, ERGOCALCIFEROL, FOLIC ACID, NICOTINAMIDE [Concomitant]

REACTIONS (12)
  - ABNORMAL FAECES [None]
  - ARTHRALGIA [None]
  - CHILLS [None]
  - DECREASED APPETITE [None]
  - ERYTHEMA [None]
  - FAECES DISCOLOURED [None]
  - HAEMOGLOBIN DECREASED [None]
  - JOINT SWELLING [None]
  - JOINT WARMTH [None]
  - ORAL INTAKE REDUCED [None]
  - PRURITUS GENERALISED [None]
  - VOMITING [None]
